FAERS Safety Report 6082686-1 (Version None)
Quarter: 2009Q1

REPORT INFORMATION
  Report Type: 
  Country: None (occurrence: None)
  Receive Date: 20090202
  Receipt Date: 20070606
  Transmission Date: 20090719
  Serious: Yes (Other)
  Sender: FDA-Public Use
  Company Number: 264306

PATIENT
  Age: 59 Year
  Sex: Female
  Weight: 79 kg

DRUGS (10)
  1. NOVOLOG [Suspect]
     Indication: DIABETES MELLITUS
     Dosage: SUBCUTANEOUS
     Route: 058
     Dates: start: 20030101
  2. LANTUS [Suspect]
     Indication: TYPE 1 DIABETES MELLITUS
     Dosage: 30-36 UNITS, QD, SUBCUTANEOUS; SUBCUTANEOUS
     Route: 058
     Dates: start: 20030101
  3. LANTUS [Suspect]
     Indication: TYPE 1 DIABETES MELLITUS
     Dosage: 30-36 UNITS, QD, SUBCUTANEOUS; SUBCUTANEOUS
     Route: 058
     Dates: start: 20070101
  4. DIOVAN [Concomitant]
  5. SYNTHROID (LEVOTHYROXINE SOIUM) POWDER AND SOLVENT FOR SOLUTION FOR IN [Concomitant]
  6. SODIUM BICARBONATE IN PLASTIC CONTAINER [Concomitant]
  7. NEXIUM [Concomitant]
  8. PLAVIX [Concomitant]
  9. TRICOR /00090101/ (ADENOSINE) [Concomitant]
  10. TACROLIMUS [Concomitant]

REACTIONS (2)
  - BLOOD GLUCOSE FLUCTUATION [None]
  - HYPOGLYCAEMIA [None]
